FAERS Safety Report 16142888 (Version 1)
Quarter: 2019Q2

REPORT INFORMATION
  Report Type: Spontaneous
  Country: SE (occurrence: SE)
  Receive Date: 20190401
  Receipt Date: 20190401
  Transmission Date: 20190711
  Serious: Yes (Other)
  Sender: FDA-Public Use
  Company Number: SE-MYLANLABS-2019M1028748

PATIENT
  Age: 20 Year
  Sex: Male
  Weight: 80 kg

DRUGS (2)
  1. CITALOPRAM [Suspect]
     Active Substance: CITALOPRAM HYDROBROMIDE
     Indication: DEPRESSION
     Dosage: UNK
     Dates: start: 200708, end: 200808
  2. CITALOPRAM [Suspect]
     Active Substance: CITALOPRAM HYDROBROMIDE
     Indication: SOCIAL ANXIETY DISORDER
     Dosage: UNK

REACTIONS (8)
  - Loss of libido [Not Recovered/Not Resolved]
  - Mental impairment [Not Recovered/Not Resolved]
  - Paraesthesia [Not Recovered/Not Resolved]
  - Cognitive disorder [Not Recovered/Not Resolved]
  - Skin burning sensation [Not Recovered/Not Resolved]
  - Erectile dysfunction [Not Recovered/Not Resolved]
  - Tinnitus [Not Recovered/Not Resolved]
  - Visual snow syndrome [Not Recovered/Not Resolved]

NARRATIVE: CASE EVENT DATE: 200809
